FAERS Safety Report 5261421-0 (Version None)
Quarter: 2007Q1

REPORT INFORMATION
  Report Type: 
  Country: None (occurrence: None)
  Receive Date: 20070307
  Receipt Date: 20070223
  Transmission Date: 20070707
  Serious: Yes (Hospitalization)
  Sender: FDA-Public Use
  Company Number: 2007PV000007

PATIENT
  Age: 57 Year
  Sex: Male
  Weight: 77 kg

DRUGS (1)
  1. DEPOCYT [Suspect]
     Indication: LEUKAEMIA
     Dosage: 50 MG;QOW; INTH
     Route: 037
     Dates: start: 20061123, end: 20070206

REACTIONS (6)
  - DIPLOPIA [None]
  - DYSPHONIA [None]
  - FEBRILE NEUTROPENIA [None]
  - HEADACHE [None]
  - MONOPLEGIA [None]
  - NEUROTOXICITY [None]
